FAERS Safety Report 5923224-0 (Version None)
Quarter: 2008Q4

REPORT INFORMATION
  Report Type: 
  Country: None (occurrence: None)
  Receive Date: 20081015
  Receipt Date: 20081007
  Transmission Date: 20090506
  Serious: Yes (Hospitalization)
  Sender: FDA-Public Use
  Company Number: 2008BI024329

PATIENT
  Age: 54 Year
  Sex: Female
  Weight: 97.7 kg

DRUGS (2)
  1. TYSABRI [Suspect]
     Indication: MULTIPLE SCLEROSIS
     Dosage: 300 MG; QM; IV
     Route: 042
     Dates: start: 20080813
  2. ULTRAM [Concomitant]

REACTIONS (2)
  - BRONCHITIS [None]
  - GRAND MAL CONVULSION [None]
